FAERS Safety Report 4697408-6 (Version None)
Quarter: 2005Q2

REPORT INFORMATION
  Report Type: 
  Country: None (occurrence: None)
  Receive Date: 20050622
  Receipt Date: 20050225
  Transmission Date: 20051028
  Serious: Yes (Hospitalization)
  Sender: FDA-Public Use
  Company Number: FR-ABBOTT-05P-056-0292151-00

PATIENT
  Sex: Female

DRUGS (9)
  1. DEPAKOTE [Suspect]
     Indication: BIPOLAR DISORDER
     Route: 048
     Dates: start: 20040914, end: 20041230
  2. RISPERIDONE [Suspect]
     Indication: ANXIETY
     Route: 048
     Dates: start: 20041218, end: 20041230
  3. RISPERIDONE [Suspect]
  4. NICARDIPINE HCL [Concomitant]
     Indication: HYPERTENSION
     Route: 048
  5. NULYTELY [Concomitant]
     Indication: CONSTIPATION
     Route: 048
  6. BISOPROLOL FUMARATE [Concomitant]
     Indication: DRUG USE FOR UNKNOWN INDICATION
     Route: 048
  7. ALPRAZOLAM [Concomitant]
     Indication: ANXIETY
     Route: 048
     Dates: start: 20041218
  8. ALPRAZOLAM [Concomitant]
     Indication: AGITATION
  9. ZOPICLONE [Concomitant]
     Indication: DRUG USE FOR UNKNOWN INDICATION
     Route: 048

REACTIONS (6)
  - DRUG INTERACTION [None]
  - ENCEPHALOPATHY [None]
  - LUNG DISORDER [None]
  - PSYCHOMOTOR RETARDATION [None]
  - SOCIAL AVOIDANT BEHAVIOUR [None]
  - SOMNOLENCE [None]
